FAERS Safety Report 8144092-5 (Version None)
Quarter: 2012Q1

REPORT INFORMATION
  Report Type: 
  Country: None (occurrence: None)
  Receive Date: 20120217
  Receipt Date: 20120214
  Transmission Date: 20120608
  Serious: Yes (Death)
  Sender: FDA-Public Use
  Company Number: IT-SANOFI-AVENTIS-2012SA009862

PATIENT
  Sex: Female

DRUGS (9)
  1. TRASTUZUMAB [Suspect]
     Route: 042
  2. DOCETAXEL [Suspect]
     Dosage: EVERY 3 WEEKS
     Route: 042
  3. TRASTUZUMAB [Suspect]
     Dosage: CYCLE 1
     Route: 042
  4. PERTUZUMAB [Suspect]
     Dosage: EVERY 3 WEEKS, CYCLES 1-3
     Route: 042
  5. PERTUZUMAB [Suspect]
     Dosage: EVERY 3 WEEKS
     Route: 042
  6. PERTUZUMAB [Suspect]
     Dosage: LOADING DOSE, CYCLES 1-3
     Route: 042
  7. DOCETAXEL [Suspect]
     Dosage: EVERY 3 WEEKS
     Route: 042
  8. TRASTUZUMAB [Suspect]
     Dosage: CYCLE 2 - 3
     Route: 042
  9. PERTUZUMAB [Suspect]
     Dosage: EVERY 3 WEEKS
     Route: 042

REACTIONS (1)
  - HEPATITIS FULMINANT [None]
